FAERS Safety Report 7213280-4 (Version None)
Quarter: 2010Q4

REPORT INFORMATION
  Report Type: 
  Country: None (occurrence: None)
  Receive Date: 20101126
  Receipt Date: 20100729
  Transmission Date: 20110411
  Serious: No
  Sender: FDA-Public Use
  Company Number: 312384

PATIENT
  Age: 64 Year
  Sex: Male

DRUGS (3)
  1. VICTOZA [Suspect]
     Indication: TYPE 2 DIABETES MELLITUS
     Dosage: SUBCUTANEOUS
     Route: 058
     Dates: start: 20100727
  2. ENBREL [Concomitant]
  3. METFORMIN HCL [Concomitant]

REACTIONS (3)
  - INJECTION SITE PRURITUS [None]
  - INJECTION SITE REACTION [None]
  - INJECTION SITE SWELLING [None]
